FAERS Safety Report 22860368 (Version 2)
Quarter: 2023Q4

REPORT INFORMATION
  Report Type: Spontaneous
  Country: GB (occurrence: GB)
  Receive Date: 20230824
  Receipt Date: 20231020
  Transmission Date: 20240109
  Serious: No
  Sender: FDA-Public Use
  Company Number: GB-PFIZER INC-PV202300141023

PATIENT
  Age: 18 Year
  Sex: Male

DRUGS (4)
  1. GENOTROPIN [Suspect]
     Active Substance: SOMATROPIN
     Indication: Growth hormone deficiency
     Dosage: 0.3 MG, DAILY
     Route: 058
     Dates: start: 202306
  2. TESTOSTERONE [Concomitant]
     Active Substance: TESTOSTERONE
  3. HYDROCORTISONE [Concomitant]
     Active Substance: HYDROCORTISONE
  4. LEVOTHYROXINE [Concomitant]
     Active Substance: LEVOTHYROXINE

REACTIONS (3)
  - Product administration error [Unknown]
  - Incorrect dose administered by device [Unknown]
  - Device calibration failure [Unknown]
